FAERS Safety Report 10178599 (Version 1)
Quarter: 2014Q2

REPORT INFORMATION
  Report Type: Spontaneous
  Country: US (occurrence: US)
  Receive Date: 20140519
  Receipt Date: 20140519
  Transmission Date: 20141212
  Serious: No
  Sender: FDA-Public Use
  Company Number: US-009507513-1405USA003411

PATIENT
  Age: 17 Year
  Sex: 0
  Weight: 66.67 kg

DRUGS (3)
  1. IMPLANON [Suspect]
     Indication: CONTRACEPTION
     Dosage: DOSE/FREQUENCY-1 ROD/3 YEARS
     Dates: start: 20110623
  2. IBUPROFEN [Concomitant]
  3. CYCLOBENZAPRINE HYDROCHLORIDE [Concomitant]

REACTIONS (6)
  - Dizziness [Recovered/Resolved]
  - Headache [Recovered/Resolved]
  - Nausea [Recovered/Resolved]
  - Dizziness [Unknown]
  - Headache [Unknown]
  - Nausea [Unknown]
